FAERS Safety Report 19411048 (Version 1)
Quarter: 2021Q2

REPORT INFORMATION
  Report Type: Other
  Country: DE (occurrence: DE)
  Receive Date: 20210614
  Receipt Date: 20210614
  Transmission Date: 20210717
  Serious: Yes (Other)
  Sender: FDA-Public Use
  Company Number: DE-ROCHE-2845420

PATIENT

DRUGS (8)
  1. ALEMTUZUMAB [Concomitant]
     Active Substance: ALEMTUZUMAB
  2. PREDNISONE. [Concomitant]
     Active Substance: PREDNISONE
  3. BENDAMUSTINE [Concomitant]
     Active Substance: BENDAMUSTINE
  4. RITUXIMAB. [Suspect]
     Active Substance: RITUXIMAB
     Indication: CHRONIC LYMPHOCYTIC LEUKAEMIA
     Route: 065
  5. VINCRISTINE SULFATE. [Concomitant]
     Active Substance: VINCRISTINE SULFATE
  6. VENETOCLAX. [Concomitant]
     Active Substance: VENETOCLAX
  7. CYCLOPHOSPHAMIDE. [Concomitant]
     Active Substance: CYCLOPHOSPHAMIDE
  8. FLUDARABINE [Concomitant]
     Active Substance: FLUDARABINE PHOSPHATE

REACTIONS (4)
  - Leukaemia recurrent [Unknown]
  - Therapeutic product effect incomplete [Unknown]
  - Epstein-Barr virus associated lymphoma [Unknown]
  - Drug intolerance [Unknown]
